FAERS Safety Report 8166250-6 (Version None)
Quarter: 2012Q1

REPORT INFORMATION
  Report Type: 
  Country: None (occurrence: None)
  Receive Date: 20120227
  Receipt Date: 20110620
  Transmission Date: 20120608
  Serious: No
  Sender: FDA-Public Use
  Company Number: US-MYLANLABS-2011S1010383

PATIENT
  Age: 17 Year
  Sex: Male
  Weight: 86.18 kg

DRUGS (5)
  1. DIVALPROEX SODIUM [Concomitant]
     Indication: CONVULSION
  2. AMNESTEEM [Suspect]
     Route: 048
     Dates: end: 20110510
  3. AMNESTEEM [Suspect]
     Indication: ACNE CYSTIC
     Route: 048
     Dates: start: 20110127
  4. AMNESTEEM [Suspect]
     Route: 048
     Dates: start: 20110127
  5. AMNESTEEM [Suspect]
     Route: 048
     Dates: end: 20110510

REACTIONS (5)
  - HAEMATOCHEZIA [None]
  - DEPRESSION [None]
  - SOMNOLENCE [None]
  - INSOMNIA [None]
  - LIVER FUNCTION TEST ABNORMAL [None]
